FAERS Safety Report 14120028 (Version 3)
Quarter: 2020Q4

REPORT INFORMATION
  Report Type: Spontaneous
  Country: PT (occurrence: PT)
  Receive Date: 20171024
  Receipt Date: 20201222
  Transmission Date: 20210113
  Serious: Yes (Other)
  Sender: FDA-Public Use
  Company Number: ALCN2017PT004585

PATIENT
  Age: 30 Year
  Sex: Female

DRUGS (3)
  1. BROMFENAC [Concomitant]
     Active Substance: BROMFENAC SODIUM
     Indication: PRODUCT USED FOR UNKNOWN INDICATION
     Dosage: 1 GTT, QID
     Route: 065
  2. CIPROFLOXACIN. [Concomitant]
     Active Substance: CIPROFLOXACIN
     Indication: PRODUCT USED FOR UNKNOWN INDICATION
     Dosage: 1 GTT, QID
     Route: 065
  3. BSS [Suspect]
     Active Substance: CALCIUM CHLORIDE\MAGNESIUM CHLORIDE\POTASSIUM CHLORIDE\SODIUM ACETATE\SODIUM CHLORIDE\SODIUM CITRATE
     Indication: EYE IRRIGATION
     Route: 031

REACTIONS (18)
  - Vitritis [Unknown]
  - Cataract [Unknown]
  - Corneal oedema [Unknown]
  - Ocular hyperaemia [Unknown]
  - Pupil fixed [Unknown]
  - Hypotony of eye [Unknown]
  - Atrophy of globe [Unknown]
  - Anterior chamber fibrin [Unknown]
  - Lacrimation increased [Unknown]
  - Corneal opacity [Unknown]
  - Retinal detachment [Unknown]
  - Choroidal effusion [Unknown]
  - Blindness [Unknown]
  - Hypersensitivity [Unknown]
  - Eyelid oedema [Unknown]
  - Intraocular pressure increased [Unknown]
  - Toxic anterior segment syndrome [Unknown]
  - Vision blurred [Unknown]

NARRATIVE: CASE EVENT DATE: 20170701
